FAERS Safety Report 22397361 (Version 1)
Quarter: 2023Q2

REPORT INFORMATION
  Report Type: Report from Study
  Country: US (occurrence: US)
  Receive Date: 20230602
  Receipt Date: 20230602
  Transmission Date: 20230722
  Serious: Yes (Other)
  Sender: FDA-Public Use
  Company Number: US-ABBVIE-4306096

PATIENT
  Age: 76 Year
  Sex: Male

DRUGS (1)
  1. RINVOQ [Suspect]
     Active Substance: UPADACITINIB
     Indication: Product used for unknown indication
     Route: 048
     Dates: start: 20221109

REACTIONS (12)
  - Skin cancer [Unknown]
  - Arthralgia [Not Recovered/Not Resolved]
  - Tibia fracture [Unknown]
  - Osteoarthritis [Unknown]
  - Change of bowel habit [Unknown]
  - Arthralgia [Not Recovered/Not Resolved]
  - Rheumatoid arthritis [Unknown]
  - Peripheral swelling [Not Recovered/Not Resolved]
  - Pneumonia legionella [Unknown]
  - Haematochezia [Recovered/Resolved]
  - Pain in extremity [Not Recovered/Not Resolved]
  - Colitis ulcerative [Unknown]

NARRATIVE: CASE EVENT DATE: 20221226
